FAERS Safety Report 8565337-3 (Version None)
Quarter: 2012Q3

REPORT INFORMATION
  Report Type: 
  Country: None (occurrence: None)
  Receive Date: 20120803
  Receipt Date: 20120730
  Transmission Date: 20120928
  Serious: Yes (Disabling, Other)
  Sender: FDA-Public Use
  Company Number: US-PURDUE-USA-2012-0090804

PATIENT
  Age: 27 Year
  Sex: Female

DRUGS (2)
  1. OXYCONTIN [Suspect]
     Indication: PRODUCT USED FOR UNKNOWN INDICATION
  2. HEROIN [Suspect]
     Indication: PRODUCT USED FOR UNKNOWN INDICATION

REACTIONS (4)
  - BRAIN INJURY [None]
  - COMMUNICATION DISORDER [None]
  - MULTIPLE DRUG OVERDOSE [None]
  - PARALYSIS [None]
